FAERS Safety Report 5508685-3 (Version None)
Quarter: 2007Q4

REPORT INFORMATION
  Report Type: 
  Country: None (occurrence: None)
  Receive Date: 20071031
  Receipt Date: 20070615
  Transmission Date: 20080405
  Serious: No
  Sender: FDA-Public Use
  Company Number: 2007PV033041

PATIENT
  Age: 64 Year
  Sex: Female

DRUGS (5)
  1. SYMLIN [Suspect]
     Indication: TYPE 2 DIABETES MELLITUS
     Dosage: 120 MCG;TID;SC ; 90 MCG;TID;SC ; 60 MCG;SC ; 30 MCG;TID;SC
     Route: 058
     Dates: start: 20060101, end: 20060101
  2. SYMLIN [Suspect]
     Indication: TYPE 2 DIABETES MELLITUS
     Dosage: 120 MCG;TID;SC ; 90 MCG;TID;SC ; 60 MCG;SC ; 30 MCG;TID;SC
     Route: 058
     Dates: start: 20060301, end: 20060101
  3. SYMLIN [Suspect]
     Indication: TYPE 2 DIABETES MELLITUS
     Dosage: 120 MCG;TID;SC ; 90 MCG;TID;SC ; 60 MCG;SC ; 30 MCG;TID;SC
     Route: 058
     Dates: start: 20060101
  4. LANTUS [Concomitant]
  5. DIABETES MEDICATION NOS [Concomitant]

REACTIONS (4)
  - BLOOD GLUCOSE DECREASED [None]
  - HYPERHIDROSIS [None]
  - MENTAL IMPAIRMENT [None]
  - TREMOR [None]
